FAERS Safety Report 8606145-4 (Version None)
Quarter: 2012Q3

REPORT INFORMATION
  Report Type: 
  Country: None (occurrence: None)
  Receive Date: 20120820
  Receipt Date: 20120814
  Transmission Date: 20120928
  Serious: Yes (Hospitalization)
  Sender: FDA-Public Use
  Company Number: US-GILEAD-2012-0053055

PATIENT
  Sex: Male

DRUGS (6)
  1. EMTRICITABINE/TENOFOVIR DISOPROXIL FUMARATE [Suspect]
     Indication: HIV INFECTION
     Dosage: 1 DF, QD
     Route: 048
     Dates: start: 20110831, end: 20111002
  2. PREZISTA [Concomitant]
     Indication: HIV INFECTION
     Dosage: 800 MG, QD
     Route: 048
     Dates: start: 20110831, end: 20111002
  3. NORVIR [Concomitant]
     Indication: HIV INFECTION
     Dosage: 100 MG, QD
     Route: 048
     Dates: start: 20110831, end: 20111002
  4. INTELENCE [Concomitant]
     Dosage: 400 MG, QD
     Route: 048
     Dates: start: 20111108, end: 20120109
  5. INTELENCE [Concomitant]
     Indication: HIV INFECTION
     Dosage: 400 MG, QD
     Route: 048
     Dates: start: 20111025, end: 20111107
  6. EPZICOM [Concomitant]
     Indication: HIV INFECTION
     Dosage: 1 DF, QD
     Route: 048
     Dates: start: 20111025, end: 20120109

REACTIONS (2)
  - PREMATURE BABY [None]
  - HYPERBILIRUBINAEMIA NEONATAL [None]
